FAERS Safety Report 13865206 (Version 1)
Quarter: 2017Q3

REPORT INFORMATION
  Report Type: Report from Study
  Country: US (occurrence: US)
  Receive Date: 20170814
  Receipt Date: 20170814
  Transmission Date: 20171127
  Serious: No
  Sender: FDA-Public Use
  Company Number: US-AEGERION PHARMACEUTICAL, INC-AEGR002779

PATIENT
  Sex: Male
  Weight: 91.16 kg

DRUGS (3)
  1. JUXTAPID [Suspect]
     Active Substance: LOMITAPIDE MESYLATE
     Indication: TYPE IIA HYPERLIPIDAEMIA
     Dosage: 5 MG, QD
     Route: 048
     Dates: start: 20130925
  2. JUXTAPID [Suspect]
     Active Substance: LOMITAPIDE MESYLATE
     Dosage: 10 MG, QD
     Route: 048
  3. EPIPEN [Suspect]
     Active Substance: EPINEPHRINE
     Indication: ARTHROPOD STING
     Dosage: 1 DF, SINGLE

REACTIONS (11)
  - Dry skin [Unknown]
  - Peripheral swelling [Unknown]
  - Skin exfoliation [Unknown]
  - Eczema [Unknown]
  - Skin discolouration [Unknown]
  - Erythema [Unknown]
  - Hyperhidrosis [Unknown]
  - Allergy to arthropod sting [Unknown]
  - Rash [Unknown]
  - Urticaria [Unknown]
  - Inappropriate schedule of drug administration [Unknown]

NARRATIVE: CASE EVENT DATE: 2015
